FAERS Safety Report 20910542 (Version 1)
Quarter: 2022Q2

REPORT INFORMATION
  Report Type: Spontaneous
  Country: IT (occurrence: IT)
  Receive Date: 20220603
  Receipt Date: 20220603
  Transmission Date: 20220721
  Serious: Yes (Death, Hospitalization, Other)
  Sender: FDA-Public Use
  Company Number: IT-PFIZER INC-202200739127

PATIENT
  Age: 34 Year
  Sex: Female

DRUGS (15)
  1. AZITHROMYCIN [Suspect]
     Active Substance: AZITHROMYCIN
     Indication: Mycobacterium abscessus infection
     Dosage: 500 MG, DAILY
     Dates: start: 202102
  2. AZITHROMYCIN [Suspect]
     Active Substance: AZITHROMYCIN
     Indication: Evidence based treatment
  3. PIPERACILLIN SODIUM\TAZOBACTAM SODIUM [Suspect]
     Active Substance: PIPERACILLIN SODIUM\TAZOBACTAM SODIUM
     Indication: Mycobacterium abscessus infection
     Dosage: UNK
     Dates: start: 202102
  4. PIPERACILLIN SODIUM\TAZOBACTAM SODIUM [Suspect]
     Active Substance: PIPERACILLIN SODIUM\TAZOBACTAM SODIUM
     Indication: Evidence based treatment
  5. LINEZOLID [Suspect]
     Active Substance: LINEZOLID
     Indication: Mycobacterium abscessus infection
     Dosage: 600 MG, TWICE DAILY
     Dates: start: 202102
  6. LINEZOLID [Suspect]
     Active Substance: LINEZOLID
     Indication: Evidence based treatment
  7. TIGECYCLINE [Suspect]
     Active Substance: TIGECYCLINE
     Indication: Mycobacterium abscessus infection
     Dosage: 50 MG, EVERY 12HOUR
     Dates: start: 202102
  8. TIGECYCLINE [Suspect]
     Active Substance: TIGECYCLINE
     Indication: Evidence based treatment
  9. AMIKACIN SULFATE [Suspect]
     Active Substance: AMIKACIN SULFATE
     Indication: Mycobacterium abscessus infection
     Dosage: 500 MG, DAILY
     Dates: start: 202102
  10. AMIKACIN SULFATE [Suspect]
     Active Substance: AMIKACIN SULFATE
     Indication: Evidence based treatment
     Dosage: 750 MG, THREE TIMES DAILY
  11. CILASTATIN SODIUM\IMIPENEM [Suspect]
     Active Substance: CILASTATIN SODIUM\IMIPENEM
     Indication: Mycobacterium abscessus infection
     Dosage: 500 MG, THREE DAILY
     Dates: start: 202102
  12. CILASTATIN SODIUM\IMIPENEM [Suspect]
     Active Substance: CILASTATIN SODIUM\IMIPENEM
     Indication: Evidence based treatment
  13. CLOFAZIMINE [Suspect]
     Active Substance: CLOFAZIMINE
     Indication: Mycobacterium abscessus infection
     Dosage: 100 MG
     Dates: start: 202102
  14. PREDNISONE [Concomitant]
     Active Substance: PREDNISONE
     Indication: Chronic graft versus host disease
     Dosage: 20 MG, DAILY
  15. RAPAMYCIN [Concomitant]
     Active Substance: SIROLIMUS
     Indication: Chronic graft versus host disease
     Dosage: UNK

REACTIONS (1)
  - Drug ineffective [Fatal]
